FAERS Safety Report 8004779-1 (Version None)
Quarter: 2011Q4

REPORT INFORMATION
  Report Type: 
  Country: None (occurrence: None)
  Receive Date: 20111220
  Receipt Date: 20111205
  Transmission Date: 20120403
  Serious: Yes (Death, Hospitalization, Other)
  Sender: FDA-Public Use
  Company Number: FK201102891

PATIENT
  Age: 5 Year
  Sex: Female

DRUGS (3)
  1. PYRAZINAMIDE [Concomitant]
  2. LEVOFLOXACIN [Concomitant]
  3. DEXAMETHASONE SODIUM PHOSPHATE [Suspect]
     Indication: TUBERCULOSIS
     Dosage: FOR 2 MONTHES, TAPERED THEN DC'D, ORAL 1 MG/KG, -1 DAY 1-1 X 1 WEEK, INTRAVENOUS (NOT OTHERWISE SPEC
     Route: 048

REACTIONS (10)
  - CNS VENTRICULITIS [None]
  - DEVICE RELATED INFECTION [None]
  - ASPERGILLOSIS [None]
  - CEREBRAL ASPERGILLOSIS [None]
  - CENTRAL NERVOUS SYSTEM INFECTION [None]
  - CARDIAC ARREST [None]
  - ACINETOBACTER INFECTION [None]
  - RESPIRATORY DISORDER [None]
  - HYDROCEPHALUS [None]
  - STENOTROPHOMONAS INFECTION [None]
